FAERS Safety Report 15156468 (Version 1)
Quarter: 2018Q3

REPORT INFORMATION
  Report Type: Spontaneous
  Country: US (occurrence: US)
  Receive Date: 20180717
  Receipt Date: 20180717
  Transmission Date: 20181010
  Serious: No
  Sender: FDA-Public Use
  Company Number: US-BAUSCH-BL-2017-029155

PATIENT
  Sex: Male

DRUGS (1)
  1. XIFAXAN [Suspect]
     Active Substance: RIFAXIMIN
     Indication: PRODUCT USED FOR UNKNOWN INDICATION
     Route: 065

REACTIONS (12)
  - Skin lesion [Unknown]
  - Paraesthesia [Unknown]
  - Amnesia [Unknown]
  - Arthralgia [Unknown]
  - Abdominal pain [Unknown]
  - Dyspepsia [Unknown]
  - Anaemia [Unknown]
  - Hypertension [Unknown]
  - Fatigue [Unknown]
  - Hypoaesthesia [Unknown]
  - Gastrooesophageal reflux disease [Unknown]
  - Anxiety [Unknown]
